FAERS Safety Report 14477836 (Version 1)
Quarter: 2018Q1

REPORT INFORMATION
  Report Type: Report from Study
  Country: US (occurrence: US)
  Receive Date: 20180201
  Receipt Date: 20180201
  Transmission Date: 20180509
  Serious: No
  Sender: FDA-Public Use
  Company Number: US-EXELIXIS-CABO-17008341

PATIENT
  Sex: Female

DRUGS (7)
  1. ZOLOFT [Concomitant]
     Active Substance: SERTRALINE HYDROCHLORIDE
  2. COMETRIQ [Suspect]
     Active Substance: CABOZANTINIB S-MALATE
     Indication: BONE CANCER
  3. ALOE VERA [Concomitant]
     Active Substance: ALOE VERA LEAF
  4. COMETRIQ [Suspect]
     Active Substance: CABOZANTINIB S-MALATE
     Indication: LUNG NEOPLASM MALIGNANT
     Dosage: 60 MG, QD
     Route: 048
     Dates: start: 20160416
  5. AMBIEN [Concomitant]
     Active Substance: ZOLPIDEM TARTRATE
  6. ATIVAN [Concomitant]
     Active Substance: LORAZEPAM
  7. GLUTATHIONE [Concomitant]
     Active Substance: GLUTATHIONE

REACTIONS (2)
  - Sinusitis [Recovering/Resolving]
  - Off label use [Unknown]
